FAERS Safety Report 8129988-2 (Version None)
Quarter: 2012Q1

REPORT INFORMATION
  Report Type: 
  Country: None (occurrence: None)
  Receive Date: 20120210
  Receipt Date: 20120131
  Transmission Date: 20120608
  Serious: Yes (Other)
  Sender: FDA-Public Use
  Company Number: CA-ABBOTT-11P-028-0877115-00

PATIENT
  Sex: Male

DRUGS (5)
  1. IMODIUM [Concomitant]
     Indication: DIARRHOEA
     Dosage: 2 TABLESPOON
     Dates: start: 20110903
  2. HUMIRA [Suspect]
     Indication: CROHN'S DISEASE
     Route: 058
     Dates: start: 20081110, end: 20110430
  3. ACETAMINOPHEN [Concomitant]
     Indication: ABDOMINAL PAIN
     Dates: start: 20110301
  4. MITOMYCIN [Concomitant]
     Indication: BLADDER CANCER
     Dates: start: 20110822
  5. COMMERCIAL HUMIRA [Concomitant]
     Indication: CROHN'S DISEASE
     Route: 058
     Dates: start: 20081010

REACTIONS (1)
  - BLADDER CANCER STAGE I, WITHOUT CANCER IN SITU [None]
